FAERS Safety Report 12819021 (Version 1)
Quarter: 2016Q4

REPORT INFORMATION
  Report Type: Spontaneous
  Country: DE (occurrence: DE)
  Receive Date: 20161006
  Receipt Date: 20161006
  Transmission Date: 20170207
  Serious: Yes (Hospitalization, Other)
  Sender: FDA-Public Use
  Company Number: DE-MYLANLABS-2016M1043008

PATIENT

DRUGS (3)
  1. MANNITOL. [Concomitant]
     Active Substance: MANNITOL
     Route: 065
  2. TEMOZOLOMIDE. [Suspect]
     Active Substance: TEMOZOLOMIDE
     Indication: GLIOBLASTOMA MULTIFORME
     Dosage: THERAPY COULD BE COMPLETED WITH A FINAL DOSE 75 MG/M2 BODY SURFACE/DAY
     Route: 065
  3. DEXAMETHASONE. [Suspect]
     Active Substance: DEXAMETHASONE
     Indication: STEROID THERAPY
     Route: 065

REACTIONS (6)
  - Ataxia [Recovering/Resolving]
  - Speech disorder [Recovering/Resolving]
  - Thrombocytopenia [Recovering/Resolving]
  - Disorientation [Recovering/Resolving]
  - Fatigue [Recovering/Resolving]
  - Cytomegalovirus infection [Recovering/Resolving]
